FAERS Safety Report 14988598 (Version 2)
Quarter: 2018Q3

REPORT INFORMATION
  Report Type: Spontaneous
  Country: US (occurrence: US)
  Receive Date: 20180608
  Receipt Date: 20180802
  Transmission Date: 20181010
  Serious: No
  Sender: FDA-Public Use
  Company Number: US-PFIZER INC-2018004907

PATIENT
  Age: 64 Year
  Sex: Female
  Weight: 86 kg

DRUGS (9)
  1. LIVALO [Concomitant]
     Active Substance: PITAVASTATIN CALCIUM
     Dosage: UNK
     Dates: start: 20141027, end: 20150114
  2. VALSARTAN AND HYDROCHLOROTHIAZIDE [Concomitant]
     Active Substance: HYDROCHLOROTHIAZIDE\VALSARTAN
     Dosage: UNK
     Dates: start: 20130310, end: 20150114
  3. ANASTROZOLE. [Concomitant]
     Active Substance: ANASTROZOLE
     Dosage: UNK
  4. PREVIDENT [Concomitant]
     Active Substance: SODIUM FLUORIDE
     Dosage: UNK
     Dates: start: 20141220, end: 20150114
  5. DOCETAXEL. [Suspect]
     Active Substance: DOCETAXEL
     Indication: BREAST CANCER METASTATIC
     Dosage: 145 MG, (4 CYCLES) EVERY 3 WEEKS
     Dates: start: 20150114, end: 20150428
  6. NEOSAR [Concomitant]
     Active Substance: CYCLOPHOSPHAMIDE
     Dosage: UNK
  7. TAXOTERE [Suspect]
     Active Substance: DOCETAXEL
     Indication: BREAST CANCER METASTATIC
     Dosage: 145 MG, (4 CYCLES) EVERY 3 WEEKS
     Dates: start: 20150114, end: 20150428
  8. OMEPRAZOLE. [Concomitant]
     Active Substance: OMEPRAZOLE
     Dosage: UNK
     Route: 048
     Dates: start: 20130722, end: 20150114
  9. POTASSIUM CHLORIDE. [Concomitant]
     Active Substance: POTASSIUM CHLORIDE
     Dosage: UNK
     Dates: start: 20150108, end: 20150114

REACTIONS (4)
  - Alopecia [Not Recovered/Not Resolved]
  - Hair colour changes [Unknown]
  - Hair texture abnormal [Unknown]
  - Hair disorder [Unknown]
